FAERS Safety Report 5859483-2 (Version None)
Quarter: 2008Q3

REPORT INFORMATION
  Report Type: 
  Country: None (occurrence: None)
  Receive Date: 20080827
  Receipt Date: 20080821
  Transmission Date: 20090109
  Serious: Yes (Hospitalization, Other)
  Sender: FDA-Public Use
  Company Number: A0718382A

PATIENT
  Age: 56 Year
  Sex: Male
  Weight: 131.8 kg

DRUGS (7)
  1. AVANDIA [Suspect]
     Dates: start: 20030101, end: 20080101
  2. AVANDAMET [Suspect]
     Dates: start: 20030101, end: 20080101
  3. AVANDARYL [Suspect]
     Dates: start: 20030101, end: 20080101
  4. GLUCOPHAGE [Concomitant]
     Dates: start: 20030801, end: 20040901
  5. METFORMIN HCL [Concomitant]
     Dates: start: 20050801, end: 20051001
  6. FORTAMET [Concomitant]
     Dates: end: 20050801
  7. HUMALOG [Concomitant]
     Dates: start: 20070119, end: 20080101

REACTIONS (2)
  - INJURY [None]
  - MYOCARDIAL INFARCTION [None]
